FAERS Safety Report 5918505-0 (Version None)
Quarter: 2008Q4

REPORT INFORMATION
  Report Type: 
  Country: None (occurrence: None)
  Receive Date: 20081014
  Receipt Date: 20081014
  Transmission Date: 20090506
  Serious: No
  Sender: FDA-Public Use
  Company Number: None

PATIENT
  Age: 61 Year
  Sex: Female
  Weight: 63 kg

DRUGS (1)
  1. PRENATAL MULTIVITAMIN SOMA LABS [Suspect]
     Dates: start: 20080801, end: 20081003

REACTIONS (2)
  - BREAST SWELLING [None]
  - BREAST TENDERNESS [None]
